FAERS Safety Report 24001982 (Version 1)
Quarter: 2024Q2

REPORT INFORMATION
  Report Type: Report from Study
  Country: US (occurrence: US)
  Receive Date: 20240622
  Receipt Date: 20240622
  Transmission Date: 20240716
  Serious: Yes (Other)
  Sender: FDA-Public Use
  Company Number: US-JAZZ PHARMACEUTICALS-2024-US-005478

PATIENT
  Sex: Female

DRUGS (1)
  1. EPIDIOLEX [Suspect]
     Active Substance: CANNABIDIOL
     Indication: Product used for unknown indication
     Dosage: 2.4 MILLILITER, BID
     Route: 048
     Dates: start: 20240401

REACTIONS (4)
  - Urinary retention [Not Recovered/Not Resolved]
  - Crying [Not Recovered/Not Resolved]
  - Tearfulness [Not Recovered/Not Resolved]
  - Product administration interrupted [Recovering/Resolving]
